FAERS Safety Report 7797386-7 (Version None)
Quarter: 2011Q4

REPORT INFORMATION
  Report Type: 
  Country: None (occurrence: None)
  Receive Date: 20111005
  Receipt Date: 20110929
  Transmission Date: 20120403
  Serious: Yes (Other)
  Sender: FDA-Public Use
  Company Number: GR-PFIZER INC-2011232091

PATIENT
  Age: 53 Year
  Sex: Male

DRUGS (7)
  1. CARBAMAZEPINE [Suspect]
     Indication: TRIGEMINAL NEURALGIA
     Dosage: 1200 MG, DAILY
  2. PREGABALIN [Suspect]
     Indication: GLOSSOPHARYNGEAL NEURALGIA
  3. BACLOFEN [Suspect]
     Indication: TRIGEMINAL NEURALGIA
     Dosage: UNK
  4. CARBAMAZEPINE [Suspect]
     Indication: GLOSSOPHARYNGEAL NEURALGIA
  5. TOPIRAMATE [Suspect]
     Dosage: UNK
  6. PREGABALIN [Suspect]
     Indication: TRIGEMINAL NEURALGIA
     Dosage: UNK
  7. BACLOFEN [Suspect]
     Indication: GLOSSOPHARYNGEAL NEURALGIA

REACTIONS (4)
  - APHONIA [None]
  - DRUG EFFECT DECREASED [None]
  - DRUG TOLERANCE [None]
  - DYSPHAGIA [None]
